FAERS Safety Report 17026187 (Version 1)
Quarter: 2019Q4

REPORT INFORMATION
  Report Type: Spontaneous
  Country: US (occurrence: US)
  Receive Date: 20191113
  Receipt Date: 20191113
  Transmission Date: 20200122
  Serious: Yes (Hospitalization, Other)
  Sender: FDA-Public Use
  Company Number: US-HIKMA PHARMACEUTICALS USA INC.-US-H14001-19-49760

PATIENT
  Age: 10 Year
  Sex: Male

DRUGS (8)
  1. ISOFLURANE. [Concomitant]
     Active Substance: ISOFLURANE
     Indication: STATUS ASTHMATICUS
     Dosage: ()
     Route: 065
  2. MAGNESIUM [Concomitant]
     Active Substance: MAGNESIUM
     Indication: STATUS ASTHMATICUS
     Dosage: ()
     Route: 065
  3. METHYLPREDNISOLONE. [Concomitant]
     Active Substance: METHYLPREDNISOLONE
     Indication: STATUS ASTHMATICUS
     Dosage: ()
     Route: 042
  4. SALBUTAMOL [Suspect]
     Active Substance: ALBUTEROL
     Indication: STATUS ASTHMATICUS
     Dosage: CONTINUOUS NEBULIZATION
     Route: 055
  5. THEOPHYLLINE [Suspect]
     Active Substance: THEOPHYLLINE ANHYDROUS
     Indication: STATUS ASTHMATICUS
     Route: 065
  6. IPRATROPIUM BROMIDE. [Concomitant]
     Active Substance: IPRATROPIUM BROMIDE
     Indication: STATUS ASTHMATICUS
     Dosage: NEBULIZATION ()
     Route: 055
  7. TERBUTALINE [Suspect]
     Active Substance: TERBUTALINE
     Indication: STATUS ASTHMATICUS
     Route: 065
  8. KETAMINE [Concomitant]
     Active Substance: KETAMINE
     Indication: STATUS ASTHMATICUS
     Dosage: ()
     Route: 065

REACTIONS (2)
  - Unmasking of previously unidentified disease [Unknown]
  - Ventricular tachycardia [Recovered/Resolved]
